FAERS Safety Report 5835221-4 (Version None)
Quarter: 2008Q3

REPORT INFORMATION
  Report Type: 
  Country: None (occurrence: None)
  Receive Date: 20080801
  Receipt Date: 20080721
  Transmission Date: 20090109
  Serious: Yes (Hospitalization)
  Sender: FDA-Public Use
  Company Number: B0531124A

PATIENT
  Age: 35 Year
  Sex: Male

DRUGS (3)
  1. ABACAVIR SULFATE [Suspect]
     Indication: HIV INFECTION
     Dosage: 300 MG / TWICE A DAY
  2. LOPINAVIR + RITONAVIR [Concomitant]
  3. LAMIVUDINE [Concomitant]

REACTIONS (4)
  - BLOOD LACTATE DEHYDROGENASE INCREASED [None]
  - DRUG RASH WITH EOSINOPHILIA AND SYSTEMIC SYMPTOMS [None]
  - NEURALGIC AMYOTROPHY [None]
  - PHARYNGITIS BACTERIAL [None]
